FAERS Safety Report 22257297 (Version 7)
Quarter: 2023Q4

REPORT INFORMATION
  Report Type: Other
  Country: DE (occurrence: None)
  Receive Date: 20230427
  Receipt Date: 20231205
  Transmission Date: 20240110
  Serious: No
  Sender: FDA-Public Use
  Company Number: DE-ROCHE-3338025

PATIENT
  Age: 52 Year
  Sex: Female
  Weight: 90 kg

DRUGS (22)
  1. OCREVUS [Suspect]
     Active Substance: OCRELIZUMAB
     Indication: Primary progressive multiple sclerosis
     Route: 042
     Dates: start: 20180907, end: 20180920
  2. OCREVUS [Suspect]
     Active Substance: OCRELIZUMAB
     Route: 042
     Dates: start: 20190408
  3. MAGNESIUM ASPARTATE HYDROCHLORIDE [Concomitant]
     Active Substance: MAGNESIUM ASPARTATE HYDROCHLORIDE
     Indication: Magnesium deficiency
     Route: 048
  4. RANITIDINE HYDROCHLORIDE [Concomitant]
     Active Substance: RANITIDINE HYDROCHLORIDE
     Route: 048
     Dates: start: 20180919, end: 20180921
  5. RANITIDINE HYDROCHLORIDE [Concomitant]
     Active Substance: RANITIDINE HYDROCHLORIDE
     Route: 048
     Dates: start: 20190407, end: 20190409
  6. RANITIDINE HYDROCHLORIDE [Concomitant]
     Active Substance: RANITIDINE HYDROCHLORIDE
     Route: 048
     Dates: start: 20180906, end: 20180908
  7. VALPROIC ACID [Concomitant]
     Active Substance: VALPROIC ACID
     Indication: Epilepsy
     Route: 048
     Dates: start: 1986
  8. IBUPROFEN [Concomitant]
     Active Substance: IBUPROFEN
     Indication: Pain
     Route: 048
  9. PFIZER-BIONTECH COVID-19 VACCINE [Concomitant]
     Active Substance: TOZINAMERAN
     Indication: COVID-19 prophylaxis
     Route: 030
     Dates: start: 20210525, end: 20210525
  10. PFIZER-BIONTECH COVID-19 VACCINE [Concomitant]
     Active Substance: TOZINAMERAN
     Route: 030
     Dates: start: 20210615, end: 20210615
  11. DIAZEPAM [Concomitant]
     Active Substance: DIAZEPAM
     Indication: Sleep disorder
     Dosage: DEFINITION OF THE INTERVAL: AS REQUIRED
     Route: 048
  12. EBASTINE [Concomitant]
     Active Substance: EBASTINE
     Route: 048
     Dates: start: 20190407, end: 20190409
  13. EBASTINE [Concomitant]
     Active Substance: EBASTINE
     Route: 048
     Dates: start: 20180906, end: 20180908
  14. EBASTINE [Concomitant]
     Active Substance: EBASTINE
     Route: 048
     Dates: start: 20180919, end: 20180921
  15. PREDNISOLONE [Concomitant]
     Active Substance: PREDNISOLONE
     Route: 042
     Dates: start: 20180907, end: 20180907
  16. PREDNISOLONE [Concomitant]
     Active Substance: PREDNISOLONE
     Route: 042
     Dates: start: 20180920, end: 20180920
  17. PREDNISOLONE [Concomitant]
     Active Substance: PREDNISOLONE
     Route: 048
     Dates: start: 20190408, end: 20190408
  18. RAMIPRIL [Concomitant]
     Active Substance: RAMIPRIL
     Indication: Hypertension
     Route: 048
     Dates: start: 201902, end: 201907
  19. CITALOPRAM [Concomitant]
     Active Substance: CITALOPRAM HYDROBROMIDE
     Indication: Depression
     Route: 048
  20. ZOPICLONE [Concomitant]
     Active Substance: ZOPICLONE
     Indication: Initial insomnia
     Route: 048
     Dates: start: 20190919
  21. ZOPICLONE [Concomitant]
     Active Substance: ZOPICLONE
     Route: 048
     Dates: start: 2023
  22. CANDESARTAN [Concomitant]
     Active Substance: CANDESARTAN
     Route: 048
     Dates: start: 201907

REACTIONS (4)
  - Herpes virus infection [Unknown]
  - Transaminases increased [Not Recovered/Not Resolved]
  - Oral herpes [Recovered/Resolved]
  - Anaemia [Recovered/Resolved]

NARRATIVE: CASE EVENT DATE: 20230330
